FAERS Safety Report 13738327 (Version 1)
Quarter: 2017Q3

REPORT INFORMATION
  Report Type: Spontaneous
  Country: FR (occurrence: FR)
  Receive Date: 20170710
  Receipt Date: 20170710
  Transmission Date: 20171127
  Serious: Yes (Hospitalization, Other)
  Sender: FDA-Public Use
  Company Number: FR-ELI_LILLY_AND_COMPANY-FR201706002667

PATIENT
  Age: 74 Year
  Sex: Male

DRUGS (5)
  1. CISPLATINE MYLAN [Suspect]
     Active Substance: CISPLATIN
     Dosage: 110.5 MG, SINGLE
     Route: 042
     Dates: start: 20170511, end: 20170511
  2. G-CSF [Concomitant]
     Active Substance: GRANULOCYTE COLONY-STIMULATING FACTOR NOS
     Indication: PRODUCT USED FOR UNKNOWN INDICATION
     Dosage: UNK, UNKNOWN
     Route: 065
     Dates: start: 20170511
  3. ALIMTA [Suspect]
     Active Substance: PEMETREXED DISODIUM
     Dosage: 722.5 MG, SINGLE
     Dates: start: 20170511, end: 20170511
  4. ALIMTA [Suspect]
     Active Substance: PEMETREXED DISODIUM
     Indication: BRONCHIAL CARCINOMA
     Dosage: 850 MG, CYCLICAL
     Route: 042
     Dates: start: 20170117
  5. CISPLATINE MYLAN [Suspect]
     Active Substance: CISPLATIN
     Indication: BRONCHIAL CARCINOMA
     Dosage: 130 MG, CYCLICAL
     Route: 042
     Dates: start: 20170117

REACTIONS (3)
  - Pancytopenia [Recovering/Resolving]
  - Subcutaneous abscess [Unknown]
  - Aortic aneurysm [Unknown]

NARRATIVE: CASE EVENT DATE: 201705
